FAERS Safety Report 5155207-5 (Version None)
Quarter: 2006Q4

REPORT INFORMATION
  Report Type: 
  Country: None (occurrence: None)
  Receive Date: 20061121
  Receipt Date: 20061115
  Transmission Date: 20070319
  Serious: Yes (Other)
  Sender: FDA-Public Use
  Company Number: GB-JNJFOC-20061103598

PATIENT
  Sex: Male
  Weight: 87 kg

DRUGS (6)
  1. REMICADE [Suspect]
     Indication: ANKYLOSING SPONDYLITIS
     Route: 042
  2. PREDNISOLONE [Concomitant]
     Route: 065
  3. CALCICHEW [Concomitant]
     Route: 065
  4. MST [Concomitant]
     Route: 065
  5. ORAMORPH SR [Concomitant]
     Route: 065
  6. DIHYDROCODEINE BITARTRATE INJ [Concomitant]
     Route: 065

REACTIONS (1)
  - SQUAMOUS CELL CARCINOMA [None]
